FAERS Safety Report 5891615-2 (Version None)
Quarter: 2008Q3

REPORT INFORMATION
  Report Type: 
  Country: None (occurrence: None)
  Receive Date: 20080922
  Receipt Date: 20080910
  Transmission Date: 20090109
  Serious: Yes (Hospitalization)
  Sender: FDA-Public Use
  Company Number: GB-PFIZER INC-2006009347

PATIENT
  Sex: Female

DRUGS (4)
  1. SINEQUAN [Suspect]
     Indication: ILL-DEFINED DISORDER
     Route: 048
     Dates: start: 20051217, end: 20051229
  2. DAPSONE [Concomitant]
     Route: 048
  3. MINOCIN [Concomitant]
     Route: 048
  4. MORPHINE SULFATE INJ [Concomitant]
     Route: 048

REACTIONS (8)
  - BLOOD ALKALINE PHOSPHATASE INCREASED [None]
  - DISORIENTATION [None]
  - DRUG ADMINISTRATION ERROR [None]
  - DRY MOUTH [None]
  - GAMMA-GLUTAMYLTRANSFERASE INCREASED [None]
  - HYPERSENSITIVITY [None]
  - OVERDOSE [None]
  - VISION BLURRED [None]
